FAERS Safety Report 11363570 (Version 1)
Quarter: 2015Q3

REPORT INFORMATION
  Report Type: Report from Study
  Country: FR (occurrence: FR)
  Receive Date: 20150811
  Receipt Date: 20150811
  Transmission Date: 20151125
  Serious: Yes (Hospitalization)
  Sender: FDA-Public Use
  Company Number: FR-ACCORD-032856

PATIENT
  Age: 71 Year
  Sex: Male

DRUGS (1)
  1. METHOTREXATE [Suspect]
     Active Substance: METHOTREXATE
     Indication: PSORIASIS
     Dosage: MISADMINISTRATION: 40 MG/WK FOR 1 WK
     Route: 048

REACTIONS (8)
  - Psoriasis [Recovered/Resolved]
  - Anaemia [Recovering/Resolving]
  - Alanine aminotransferase increased [Recovering/Resolving]
  - Herpes simplex [Unknown]
  - Scab [Recovered/Resolved]
  - Neutropenia [Recovering/Resolving]
  - Incorrect dose administered [Unknown]
  - Mouth ulceration [Recovered/Resolved]
